FAERS Safety Report 21870146 (Version 2)
Quarter: 2025Q2

REPORT INFORMATION
  Report Type: Spontaneous
  Country: US (occurrence: US)
  Receive Date: 20230117
  Receipt Date: 20250524
  Transmission Date: 20250716
  Serious: No
  Sender: SANOFI AVENTIS
  Company Number: US-SANOFI-01442816

PATIENT
  Age: 58 Year
  Sex: Male

DRUGS (2)
  1. LANTUS SOLOSTAR [Suspect]
     Active Substance: INSULIN GLARGINE
     Indication: Type 2 diabetes mellitus
     Dosage: 25 UNITS IN THE MORNING AND 20 UNITS AT NIGHT, BID
     Dates: start: 2000
  2. LANTUS SOLOSTAR [Suspect]
     Active Substance: INSULIN GLARGINE
     Dosage: 25 UNITS IN THE MORNING AND 10 UNITS AT NIGHT, BID
     Dates: start: 2024

REACTIONS (1)
  - Off label use [Unknown]
